FAERS Safety Report 14711805 (Version 1)
Quarter: 2018Q2

REPORT INFORMATION
  Report Type: Spontaneous
  Country: GB (occurrence: GB)
  Receive Date: 20180403
  Receipt Date: 20180403
  Transmission Date: 20180711
  Serious: Yes (Hospitalization)
  Sender: FDA-Public Use
  Company Number: GB-TEVA-2018-GB-878034

PATIENT
  Age: 80 Year

DRUGS (2)
  1. ACETYLSALICYLIC ACID [Concomitant]
     Active Substance: ASPIRIN
     Dosage: 75 MILLIGRAM DAILY;
     Route: 065
  2. SOTALOL. [Suspect]
     Active Substance: SOTALOL
     Dosage: 160 MILLIGRAM DAILY;
     Route: 065

REACTIONS (1)
  - Gout [Unknown]
